FAERS Safety Report 7517954-7 (Version None)
Quarter: 2011Q2

REPORT INFORMATION
  Report Type: 
  Country: None (occurrence: None)
  Receive Date: 20110523
  Receipt Date: 20110509
  Transmission Date: 20111010
  Serious: Yes (Hospitalization, Other)
  Sender: FDA-Public Use
  Company Number: 2010MA001666

PATIENT
  Sex: Female

DRUGS (7)
  1. PHENERGAN HCL [Concomitant]
  2. TERAZOL 1 [Concomitant]
  3. METOCLOPRAMIDE [Suspect]
     Indication: ABDOMINAL PAIN
     Dosage: 10 MG;TID;PO
     Route: 048
     Dates: start: 20030923, end: 20091029
  4. BACTRIM DS [Concomitant]
  5. DIFLUCAN [Concomitant]
  6. DEPAKOTE [Concomitant]
  7. AMITRIPTYLINE HYDROCHLORIDE [Concomitant]

REACTIONS (58)
  - ANGINA UNSTABLE [None]
  - CHOLELITHIASIS [None]
  - HEADACHE [None]
  - VENTRICULAR HYPOKINESIA [None]
  - IRRITABLE BOWEL SYNDROME [None]
  - GASTRITIS [None]
  - ABDOMINAL PAIN [None]
  - URINARY TRACT INFECTION [None]
  - RASH [None]
  - EMOTIONAL DISORDER [None]
  - COUGH [None]
  - HYPERHIDROSIS [None]
  - REFUSAL OF TREATMENT BY PATIENT [None]
  - UPPER-AIRWAY COUGH SYNDROME [None]
  - PARAESTHESIA [None]
  - TARDIVE DYSKINESIA [None]
  - TREMOR [None]
  - OROPHARYNGEAL PAIN [None]
  - FATIGUE [None]
  - HYPOAESTHESIA [None]
  - VISION BLURRED [None]
  - HYPERLIPIDAEMIA [None]
  - HEPATIC STEATOSIS [None]
  - GALLBLADDER DISORDER [None]
  - BILIARY DILATATION [None]
  - TRICUSPID VALVE INCOMPETENCE [None]
  - ATRIAL SEPTAL DEFECT ACQUIRED [None]
  - ECONOMIC PROBLEM [None]
  - RETCHING [None]
  - NAUSEA [None]
  - PYREXIA [None]
  - BREATH ODOUR [None]
  - CONSTIPATION [None]
  - PANCREATITIS [None]
  - GASTROENTERITIS VIRAL [None]
  - HEPATOMEGALY [None]
  - LEFT VENTRICULAR DYSFUNCTION [None]
  - MITRAL VALVE INCOMPETENCE [None]
  - DYSGEUSIA [None]
  - ORTHOPNOEA [None]
  - HYPERGLYCAEMIA [None]
  - DYSPNOEA EXERTIONAL [None]
  - ABDOMINAL PAIN UPPER [None]
  - POLYURIA [None]
  - DIASTOLIC DYSFUNCTION [None]
  - GLYCOSYLATED HAEMOGLOBIN INCREASED [None]
  - BLOOD PRESSURE SYSTOLIC INCREASED [None]
  - EXTRAPYRAMIDAL DISORDER [None]
  - DYSPNOEA [None]
  - ASTHMA [None]
  - SKIN DISCOLOURATION [None]
  - HEPATIC CYST [None]
  - INJURY [None]
  - BREAST MASS [None]
  - EAR PAIN [None]
  - PLEURITIC PAIN [None]
  - CELLULITIS [None]
  - DILATATION VENTRICULAR [None]
